FAERS Safety Report 18326019 (Version 2)
Quarter: 2020Q4

REPORT INFORMATION
  Report Type: Spontaneous
  Country: US (occurrence: US)
  Receive Date: 20200929
  Receipt Date: 20201021
  Transmission Date: 20210113
  Serious: Yes (Life-Threatening, Hospitalization)
  Sender: FDA-Public Use
  Company Number: US-TEVA-2020-US-1833057

PATIENT
  Age: 30 Year
  Sex: Female

DRUGS (16)
  1. BETAMETHASONE. [Suspect]
     Active Substance: BETAMETHASONE
     Indication: MATERNAL THERAPY TO ENHANCE FOETAL LUNG MATURITY
     Route: 065
  2. BUPIVACAINE. [Suspect]
     Active Substance: BUPIVACAINE
     Dosage: GRADUAL TITRATION TO 8 ML/H AS ACTIVE LABOR PROGRESSED.
     Route: 050
  3. OXYTOCIN. [Suspect]
     Active Substance: OXYTOCIN
     Indication: UTERINE CONTRACTIONS DURING PREGNANCY
     Dosage: 40 UNITS OVER 30 MINUTES
     Route: 042
  4. SILDENAFIL. [Suspect]
     Active Substance: SILDENAFIL
     Dosage: 60 MILLIGRAM DAILY; 3 TIMES PER DAY PRESCRIBED AT THE TIME OF DISCHARGE
     Route: 065
  5. CHLOROPROCAINE [Suspect]
     Active Substance: CHLOROPROCAINE
     Indication: ANAESTHESIA
     Route: 008
  6. EPOPROSTENOL. [Suspect]
     Active Substance: EPOPROSTENOL
     Indication: RIGHT-TO-LEFT CARDIAC SHUNT
     Dosage: VIA A PERIPHERALLY INSERTED CENTRAL VENOUS CATHETER 1NG/KG/MIN
     Route: 042
  7. ROPIVACAINE. [Suspect]
     Active Substance: ROPIVACAINE HYDROCHLORIDE
     Indication: ANAESTHESIA
     Route: 008
  8. FENTANYL. [Suspect]
     Active Substance: FENTANYL
     Indication: ANAESTHESIA
     Dosage: 48 ML DAILY; 2 MG/ML OF FENTANYL RUNNING AT 2 ML/HOUR
     Route: 008
  9. CHLOROPROCAINE [Suspect]
     Active Substance: CHLOROPROCAINE
     Dosage: ADDITIONAL BOLUSES OF 15 ML
     Route: 008
  10. BUPIVACAINE. [Suspect]
     Active Substance: BUPIVACAINE
     Indication: ANAESTHESIA
     Dosage: BOLUSES OF 2 TO 4 ML
     Route: 008
  11. SILDENAFIL. [Suspect]
     Active Substance: SILDENAFIL
     Indication: RIGHT-TO-LEFT CARDIAC SHUNT
     Route: 048
  12. EPOPROSTENOL. [Suspect]
     Active Substance: EPOPROSTENOL
     Dosage: 17 NG/KG/MIN OVER A 2-WEEK
     Route: 042
  13. ENOXAPARIN-SODIUM [Suspect]
     Active Substance: ENOXAPARIN SODIUM
     Indication: RIGHT-TO-LEFT CARDIAC SHUNT
     Dosage: 40 MILLIGRAM DAILY;
     Route: 065
  14. TREPROSTINIL. [Suspect]
     Active Substance: TREPROSTINIL
     Indication: RIGHT-TO-LEFT CARDIAC SHUNT
     Route: 050
  15. TREPROSTINIL. [Suspect]
     Active Substance: TREPROSTINIL
     Indication: RIGHT-TO-LEFT CARDIAC SHUNT
     Dosage: 9 PUFFS
     Route: 050
  16. HEPARIN [Suspect]
     Active Substance: HEPARIN SODIUM
     Indication: RIGHT-TO-LEFT CARDIAC SHUNT
     Dosage: 15000 IU (INTERNATIONAL UNIT) DAILY;
     Route: 058

REACTIONS (6)
  - Maternal exposure during pregnancy [Unknown]
  - Hypovolaemia [Recovering/Resolving]
  - Vasodilatation [Recovering/Resolving]
  - Heart rate increased [Recovered/Resolved]
  - Blood pressure decreased [Recovered/Resolved]
  - Haemodynamic instability [Recovering/Resolving]
